FAERS Safety Report 8195986-6 (Version None)
Quarter: 2012Q1

REPORT INFORMATION
  Report Type: 
  Country: None (occurrence: None)
  Receive Date: 20120309
  Receipt Date: 20120227
  Transmission Date: 20120608
  Serious: Yes (Hospitalization)
  Sender: FDA-Public Use
  Company Number: US-BIOGENIDEC-2012BI007255

PATIENT
  Sex: Female

DRUGS (1)
  1. AVONEX [Suspect]
     Indication: MULTIPLE SCLEROSIS
     Route: 030
     Dates: start: 20010101, end: 20020101

REACTIONS (5)
  - INTERVERTEBRAL DISC PROTRUSION [None]
  - FALL [None]
  - VIRAL INFECTION [None]
  - MULTIPLE SCLEROSIS RELAPSE [None]
  - MALAISE [None]
